FAERS Safety Report 6663778-2 (Version None)
Quarter: 2010Q2

REPORT INFORMATION
  Report Type: 
  Country: None (occurrence: None)
  Receive Date: 20100401
  Receipt Date: 20100324
  Transmission Date: 20101027
  Serious: Yes (Life-Threatening, Other)
  Sender: FDA-Public Use
  Company Number: US-JNJFOC-20100307642

PATIENT
  Sex: Female
  Weight: 115.21 kg

DRUGS (1)
  1. REMICADE [Suspect]
     Indication: PSORIATIC ARTHROPATHY
     Dosage: DOSE: 5 VIALS
     Route: 042

REACTIONS (2)
  - BREAST MASS [None]
  - RENAL FAILURE [None]
